FAERS Safety Report 15965750 (Version 1)
Quarter: 2019Q1

REPORT INFORMATION
  Report Type: Other
  Country: GB (occurrence: GB)
  Receive Date: 20190215
  Receipt Date: 20190215
  Transmission Date: 20190418
  Serious: Yes (Other)
  Sender: FDA-Public Use
  Company Number: GB-BIODELIVERY SCIENCES INTERNATIONAL-2019BDSI0113

PATIENT
  Age: 53 Year
  Sex: Female

DRUGS (4)
  1. ATRACURIUM BESILATE [Suspect]
     Active Substance: ATRACURIUM BESYLATE
     Indication: ANAESTHESIA
  2. PROPOFOL. [Suspect]
     Active Substance: PROPOFOL
     Indication: ANAESTHESIA
  3. DESFLURANE. [Suspect]
     Active Substance: DESFLURANE
     Indication: ANAESTHESIA
  4. FENTANYL CITRATE. [Suspect]
     Active Substance: FENTANYL CITRATE
     Indication: ANAESTHESIA
     Route: 065

REACTIONS (7)
  - Hepatitis B [Unknown]
  - HIV-associated neurocognitive disorder [Unknown]
  - Muscle twitching [Unknown]
  - Coma scale abnormal [Unknown]
  - Gaze palsy [Unknown]
  - Urinary incontinence [Unknown]
  - Seizure [Unknown]
